FAERS Safety Report 6751473-0 (Version None)
Quarter: 2010Q2

REPORT INFORMATION
  Report Type: 
  Country: None (occurrence: None)
  Receive Date: 20100602
  Receipt Date: 20100528
  Transmission Date: 20101027
  Serious: Yes (Disabling, Other)
  Sender: FDA-Public Use
  Company Number: BR-ROCHE-700285

PATIENT
  Sex: Male
  Weight: 89 kg

DRUGS (6)
  1. RIVOTRIL [Suspect]
     Indication: INSOMNIA
     Dosage: TAKEN AT NIGHT
     Route: 065
     Dates: start: 20080101
  2. RIVOTRIL [Suspect]
     Dosage: 4 TABLET, OVERDOSE
     Route: 065
     Dates: start: 20100427, end: 20100427
  3. RIVOTRIL [Suspect]
     Route: 065
  4. OMEPRAZOLE [Concomitant]
     Dates: start: 20090901
  5. METFORMIN HYDROCHLORIDE [Concomitant]
     Dates: start: 20000101
  6. INSULIN [Concomitant]
     Dates: start: 20000101

REACTIONS (5)
  - CEREBROVASCULAR ACCIDENT [None]
  - CONFUSIONAL STATE [None]
  - HYPOKINESIA [None]
  - OVERDOSE [None]
  - SOMNOLENCE [None]
